FAERS Safety Report 5702475-4 (Version None)
Quarter: 2008Q2

REPORT INFORMATION
  Report Type: 
  Country: None (occurrence: None)
  Receive Date: 20080411
  Receipt Date: 20080402
  Transmission Date: 20081010
  Serious: Yes (Other)
  Sender: FDA-Public Use
  Company Number: FR-JNJFOC-20080205517

PATIENT
  Sex: Female
  Weight: 74 kg

DRUGS (12)
  1. DURAGESIC-100 [Suspect]
     Indication: BACK PAIN
     Route: 062
  2. NOCTRAN [Concomitant]
     Route: 065
  3. NORDAZ [Concomitant]
     Route: 065
  4. CRESTOR [Concomitant]
     Route: 065
  5. INIPOMP [Concomitant]
     Route: 065
  6. BISOPROLOL FUMARATE [Concomitant]
     Route: 065
  7. VASTAREL [Concomitant]
     Route: 065
  8. MIOREL [Concomitant]
     Route: 065
  9. BUFLOMEDIL [Concomitant]
     Route: 065
  10. GABAPENTIN [Concomitant]
     Route: 065
  11. PROPOFAN [Concomitant]
     Route: 065
  12. MOVICOL [Concomitant]
     Route: 065

REACTIONS (2)
  - GAMMA-GLUTAMYLTRANSFERASE INCREASED [None]
  - HEPATIC ENZYME INCREASED [None]
